FAERS Safety Report 4441651-8 (Version None)
Quarter: 2004Q3

REPORT INFORMATION
  Report Type: 
  Country: None (occurrence: None)
  Receive Date: 20040907
  Receipt Date: 20040826
  Transmission Date: 20050211
  Serious: Yes (Hospitalization)
  Sender: FDA-Public Use
  Company Number: US-AMGEN-US040878

PATIENT
  Sex: Female

DRUGS (6)
  1. KINERET [Suspect]
     Indication: RHEUMATOID ARTHRITIS
     Route: 058
     Dates: start: 20020815
  2. PLAQUENIL [Suspect]
     Route: 048
     Dates: start: 20020701
  3. ACETAMINOPHEN AND OXYCODONE HCL [Concomitant]
     Route: 048
  4. LASIX [Concomitant]
     Dates: start: 19830101
  5. K-DUR 10 [Concomitant]
     Dates: start: 19830101
  6. LANTUS [Concomitant]
     Dates: start: 20030616

REACTIONS (1)
  - PANCREATITIS [None]
